FAERS Safety Report 6213563-0 (Version None)
Quarter: 2009Q2

REPORT INFORMATION
  Report Type: 
  Country: None (occurrence: None)
  Receive Date: 20090603
  Receipt Date: 20090527
  Transmission Date: 20091009
  Serious: Yes (Hospitalization)
  Sender: FDA-Public Use
  Company Number: US-BAYER-200911356BCC

PATIENT
  Sex: Male
  Weight: 68 kg

DRUGS (2)
  1. ALEVE (CAPLET) [Suspect]
     Indication: GOUT
     Dosage: TOOK 4 OR 5 CAPLETS PER HOUR,FOR MORE THAN ONE DAY BUT NO MORE THAN ONE WEEK
     Route: 048
     Dates: start: 20060101
  2. COLCHICINE [Concomitant]
     Route: 065

REACTIONS (4)
  - FAECES DISCOLOURED [None]
  - FALL [None]
  - GASTRIC HAEMORRHAGE [None]
  - LOSS OF CONSCIOUSNESS [None]
